FAERS Safety Report 21417953 (Version 1)
Quarter: 2022Q4

REPORT INFORMATION
  Report Type: Spontaneous
  Country: CN (occurrence: CN)
  Receive Date: 20221006
  Receipt Date: 20221006
  Transmission Date: 20230113
  Serious: Yes (Other)
  Sender: FDA-Public Use
  Company Number: CN-009507513-2210CHN000108

PATIENT
  Sex: Female

DRUGS (1)
  1. CILASTATIN SODIUM\IMIPENEM [Suspect]
     Active Substance: CILASTATIN SODIUM\IMIPENEM
     Indication: Anti-infective therapy
     Dosage: 0.5G, TID
     Route: 041
     Dates: start: 20180322, end: 20180403

REACTIONS (2)
  - Pancreaticoduodenectomy [Unknown]
  - Diarrhoea [Recovering/Resolving]
